FAERS Safety Report 19924720 (Version 1)
Quarter: 2021Q4

REPORT INFORMATION
  Report Type: Spontaneous
  Country: BR (occurrence: BR)
  Receive Date: 20211006
  Receipt Date: 20211006
  Transmission Date: 20220303
  Serious: Yes (Hospitalization, Other)
  Sender: FDA-Public Use
  Company Number: BR-AMGEN-BRASP2021149355

PATIENT
  Age: 58 Year
  Sex: Male

DRUGS (5)
  1. CINACALCET HYDROCHLORIDE [Suspect]
     Active Substance: CINACALCET HYDROCHLORIDE
     Indication: Hyperparathyroidism secondary
     Dosage: UNK
     Route: 065
  2. ISOSORBIDE [Concomitant]
     Active Substance: ISOSORBIDE
  3. NPH INSULIN [Concomitant]
     Active Substance: INSULIN BEEF
  4. GABAPENTIN [Concomitant]
     Active Substance: GABAPENTIN
  5. CAPTOPRIL [Concomitant]
     Active Substance: CAPTOPRIL

REACTIONS (2)
  - Penile necrosis [Recovering/Resolving]
  - Calciphylaxis [Unknown]
